FAERS Safety Report 4978392-4 (Version None)
Quarter: 2006Q1

REPORT INFORMATION
  Report Type: 
  Country: None (occurrence: None)
  Receive Date: 20060228
  Receipt Date: 20050311
  Transmission Date: 20060701
  Serious: Yes (Hospitalization)
  Sender: FDA-Public Use
  Company Number: 2005044047

PATIENT
  Age: 67 Year
  Sex: Male
  Weight: 92.5338 kg

DRUGS (3)
  1. NIFEDIPINE [Suspect]
     Indication: ILL-DEFINED DISORDER
     Dates: end: 20041201
  2. PEGINTERFERON ALFA-2B (PEGINTERFERON ALFA-2B) [Concomitant]
  3. RIBAVIRIN [Concomitant]

REACTIONS (2)
  - CONDITION AGGRAVATED [None]
  - OEDEMA [None]
